FAERS Safety Report 19507499 (Version 1)
Quarter: 2021Q3

REPORT INFORMATION
  Report Type: Spontaneous
  Country: CN (occurrence: CN)
  Receive Date: 20210708
  Receipt Date: 20210708
  Transmission Date: 20211014
  Serious: Yes (Other)
  Sender: FDA-Public Use
  Company Number: CN-BRACCO-2021CN02897

PATIENT
  Age: 48 Year
  Sex: Female

DRUGS (1)
  1. GADOBENATE DIMEGLUMINE [Suspect]
     Active Substance: GADOBENATE DIMEGLUMINE
     Indication: DIAGNOSTIC PROCEDURE
     Dosage: 15 ML, SINGLE
     Route: 040
     Dates: start: 20210618, end: 20210618

REACTIONS (3)
  - Muscular weakness [Recovering/Resolving]
  - Palpitations [Recovering/Resolving]
  - Mouth breathing [Recovering/Resolving]

NARRATIVE: CASE EVENT DATE: 20210618
